FAERS Safety Report 5141096-1 (Version None)
Quarter: 2006Q4

REPORT INFORMATION
  Report Type: 
  Country: None (occurrence: None)
  Receive Date: 20061101
  Receipt Date: 20060302
  Transmission Date: 20070319
  Serious: Yes (Hospitalization)
  Sender: FDA-Public Use
  Company Number: US-ELI_LILLY_AND_COMPANY-US200603003471

PATIENT
  Sex: Female
  Weight: 86.167 kg

DRUGS (3)
  1. NPH INSULIN [Concomitant]
     Indication: DIABETES MELLITUS
     Dates: start: 19911001
  2. HYDROCHLOROTHIAZID [Concomitant]
     Dates: start: 20020301
  3. ZYPREXA [Suspect]
     Indication: STRESS
     Dosage: 2.5 MG, UNK
     Dates: start: 20040601

REACTIONS (4)
  - ANAEMIA [None]
  - CEREBROVASCULAR ACCIDENT [None]
  - CONVULSION [None]
  - DIABETES MELLITUS [None]
